FAERS Safety Report 10249526 (Version 2)
Quarter: 2014Q2

REPORT INFORMATION
  Report Type: Spontaneous
  Country: CH (occurrence: CH)
  Receive Date: 20140620
  Receipt Date: 20140624
  Transmission Date: 20141212
  Serious: Yes (Other)
  Sender: FDA-Public Use
  Company Number: CH-PFIZER INC-2014167003

PATIENT
  Sex: Male
  Weight: 60 kg

DRUGS (2)
  1. PANTOZOL [Suspect]
     Dosage: 8 MG, PER HOUR
     Route: 042
     Dates: start: 201311, end: 201311
  2. ULCOGANT [Concomitant]

REACTIONS (3)
  - Catheter site phlebitis [Recovered/Resolved]
  - Catheter site cellulitis [Recovered/Resolved]
  - Off label use [Recovered/Resolved]
